FAERS Safety Report 16399101 (Version 1)
Quarter: 2019Q2

REPORT INFORMATION
  Report Type: Report from Study
  Country: IL (occurrence: IL)
  Receive Date: 20190606
  Receipt Date: 20190606
  Transmission Date: 20190711
  Serious: Yes (Hospitalization)
  Sender: FDA-Public Use
  Company Number: IL-SA-2019SA144967

PATIENT
  Sex: Female
  Weight: 2.6 kg

DRUGS (10)
  1. EUTHYROX [Concomitant]
     Active Substance: LEVOTHYROXINE SODIUM
     Dosage: UNK
     Dates: start: 20151114, end: 20160705
  2. INSULIN LISPRO [Suspect]
     Active Substance: INSULIN LISPRO
     Dosage: 51 IU, QD
     Route: 064
     Dates: start: 20160703, end: 20160705
  3. NIFEDIPINE. [Concomitant]
     Active Substance: NIFEDIPINE
     Dosage: UNK
     Dates: start: 20160704, end: 20160704
  4. RITALIN [Concomitant]
     Active Substance: METHYLPHENIDATE HYDROCHLORIDE
     Dosage: UNK
     Route: 065
     Dates: start: 20151114, end: 20160705
  5. ATOSIBAN [Concomitant]
     Active Substance: ATOSIBAN
     Dosage: UNK
     Dates: start: 20160704, end: 20160705
  6. INSULIN GLARGINE [Suspect]
     Active Substance: INSULIN GLARGINE
     Indication: TYPE 1 DIABETES MELLITUS
     Dosage: 46 IU, QD
     Route: 064
     Dates: start: 20151114
  7. INSULIN GLARGINE [Suspect]
     Active Substance: INSULIN GLARGINE
     Dosage: 52 UNK, QD
     Route: 064
     Dates: start: 20160703, end: 20160705
  8. INSULIN LISPRO [Suspect]
     Active Substance: INSULIN LISPRO
     Indication: TYPE 1 DIABETES MELLITUS
     Dosage: 25 IU, QD
     Route: 064
     Dates: start: 20151114
  9. FOLIC ACID. [Concomitant]
     Active Substance: FOLIC ACID
     Dosage: UNK
     Dates: start: 20150713, end: 20160705
  10. LEVEMIR [Suspect]
     Active Substance: INSULIN DETEMIR
     Indication: TYPE 1 DIABETES MELLITUS
     Dosage: 20 U, QD
     Route: 064
     Dates: start: 20151114, end: 20160621

REACTIONS (4)
  - Hypoglycaemia neonatal [Recovered/Resolved]
  - Hernia [Recovered/Resolved]
  - Premature baby [Recovered/Resolved]
  - Foetal exposure during pregnancy [Recovered/Resolved]

NARRATIVE: CASE EVENT DATE: 20151114
